FAERS Safety Report 14275971 (Version 1)
Quarter: 2017Q4

REPORT INFORMATION
  Report Type: Spontaneous
  Country: US (occurrence: US)
  Receive Date: 20171212
  Receipt Date: 20171212
  Transmission Date: 20180321
  Serious: Yes (Life-Threatening)
  Sender: FDA-Public Use
  Company Number: US-ACS-000873

PATIENT
  Age: 46 Year
  Sex: Female
  Weight: 94.35 kg

DRUGS (5)
  1. CEFTRIAXONE FOR INJECTION 1G [Suspect]
     Active Substance: CEFTRIAXONE
     Indication: COUGH
     Route: 030
     Dates: start: 20171111, end: 20171111
  2. TYLENOL [Concomitant]
     Active Substance: ACETAMINOPHEN
     Route: 065
  3. LIDOCAINE 1% [Concomitant]
     Active Substance: LIDOCAINE
     Route: 030
  4. ZOLOFT [Concomitant]
     Active Substance: SERTRALINE HYDROCHLORIDE
     Route: 065
  5. SUBOXONE [Concomitant]
     Active Substance: BUPRENORPHINE HYDROCHLORIDE\NALOXONE HYDROCHLORIDE
     Route: 065

REACTIONS (7)
  - Paraesthesia [Recovered/Resolved]
  - Circulatory collapse [Recovered/Resolved]
  - Swollen tongue [Recovered/Resolved]
  - Flushing [Recovered/Resolved]
  - Cardiac arrest [Recovered/Resolved]
  - Dyspnoea [Recovered/Resolved]
  - Pharyngeal oedema [Recovered/Resolved]

NARRATIVE: CASE EVENT DATE: 20171111
